FAERS Safety Report 9897209 (Version 1)
Quarter: 2014Q1

REPORT INFORMATION
  Report Type: Report from Study
  Country: FR (occurrence: FR)
  Receive Date: 20140214
  Receipt Date: 20140214
  Transmission Date: 20141002
  Serious: Yes (Hospitalization)
  Sender: FDA-Public Use
  Company Number: FR-ROCHE-1344123

PATIENT
  Sex: Female

DRUGS (8)
  1. RITUXIMAB [Suspect]
     Indication: RHEUMATOID ARTHRITIS
     Dosage: DAY 1 AND  ON 19/MAY/2008 (DAY 15)
     Route: 041
     Dates: start: 20080505
  2. RITUXIMAB [Suspect]
     Dosage: DAY 1 AND ON 26/JAN/2009, DAY 15
     Route: 041
     Dates: start: 20090112
  3. RITUXIMAB [Suspect]
     Dosage: DAY 1 AND ON 23/MAY/2013 (DAY 15)
     Route: 041
     Dates: start: 20091027
  4. RITUXIMAB [Suspect]
     Dosage: DAY 1 AND ON 23/MAY/2013 (DAY 15)
     Route: 041
     Dates: start: 20130506
  5. CORTANCYL [Concomitant]
     Route: 065
     Dates: start: 20080505
  6. CORTANCYL [Concomitant]
     Route: 065
     Dates: start: 20080519
  7. CORTANCYL [Concomitant]
     Route: 065
     Dates: start: 20130506
  8. CORTANCYL [Concomitant]
     Route: 065
     Dates: start: 20130523

REACTIONS (8)
  - Abscess [Recovered/Resolved]
  - Intervertebral disc protrusion [Unknown]
  - Psoriasis [Recovered/Resolved]
  - Arthritis [Unknown]
  - Arthralgia [Unknown]
  - Dyspnoea exertional [Recovered/Resolved]
  - Humerus fracture [Unknown]
  - Peripheral sensory neuropathy [Unknown]
